FAERS Safety Report 7638730-0 (Version None)
Quarter: 2011Q3

REPORT INFORMATION
  Report Type: 
  Country: None (occurrence: None)
  Receive Date: 20110727
  Receipt Date: 20110720
  Transmission Date: 20111222
  Serious: Yes (Hospitalization)
  Sender: FDA-Public Use
  Company Number: BR-SHIRE-SPV1-2011-01054

PATIENT
  Age: 13 Year
  Sex: Male

DRUGS (1)
  1. ELAPRASE [Suspect]
     Indication: MUCOPOLYSACCHARIDOSIS II
     Dosage: 3 DF, 1X/WEEK
     Route: 041
     Dates: start: 20100121

REACTIONS (2)
  - CONVULSION [None]
  - BLOOD SODIUM DECREASED [None]
